FAERS Safety Report 5387387-0 (Version None)
Quarter: 2007Q3

REPORT INFORMATION
  Report Type: 
  Country: None (occurrence: None)
  Receive Date: 20070711
  Receipt Date: 20070628
  Transmission Date: 20080115
  Serious: Yes (Hospitalization, Other)
  Sender: FDA-Public Use
  Company Number: 2007SP013062

PATIENT
  Age: 90 Year

DRUGS (2)
  1. CLARITIN [Suspect]
     Indication: DRUG USE FOR UNKNOWN INDICATION
     Dosage: 10 MG;PO
     Route: 048
     Dates: start: 20070430, end: 20070518
  2. MINOMYCIN (CON.) [Concomitant]

REACTIONS (1)
  - VENTRICULAR ARRHYTHMIA [None]
